FAERS Safety Report 10710875 (Version 1)
Quarter: 2015Q1

REPORT INFORMATION
  Report Type: Spontaneous
  Country: FR (occurrence: None)
  Receive Date: 20150112
  Receipt Date: 20150112
  Transmission Date: 20150721
  Serious: Yes (Death, Hospitalization)
  Sender: FDA-Public Use
  Company Number: FRA-SPN-2011004

PATIENT
  Age: 21 Year
  Sex: Female

DRUGS (6)
  1. CARBAGLU [Suspect]
     Active Substance: CARGLUMIC ACID
     Indication: HYPERAMMONAEMIA
     Route: 048
     Dates: start: 201012, end: 201103
  2. SODIUM PHENYLBUTYRATE. [Concomitant]
     Active Substance: SODIUM PHENYLBUTYRATE
  3. SODIUM BENZOATE [Concomitant]
     Active Substance: SODIUM BENZOATE
  4. ARGININ [Concomitant]
  5. CITRULLINE [Concomitant]
     Active Substance: CITRULLINE
  6. AMMONAPS [Concomitant]
     Active Substance: SODIUM PHENYLBUTYRATE

REACTIONS (13)
  - Circulatory collapse [None]
  - Meningorrhagia [None]
  - Intracranial pressure increased [None]
  - Hyperammonaemia [None]
  - Cardiac arrest [None]
  - Hyperlactacidaemia [None]
  - Hepatocellular injury [None]
  - Respiratory failure [None]
  - Dialysis [None]
  - Coma [None]
  - Renal failure [None]
  - Hepatic failure [None]
  - Adverse event [None]

NARRATIVE: CASE EVENT DATE: 20110324
